FAERS Safety Report 8909367 (Version 1)
Quarter: 2012Q4

REPORT INFORMATION
  Report Type: 
  Country: US (occurrence: US)
  Receive Date: 20121114
  Receipt Date: 20121114
  Transmission Date: 20130627
  Serious: Yes (Hospitalization, Other)
  Sender: FDA-Public Use
  Company Number: US-AMGEN-USASP2012072085

PATIENT
  Age: 53 Year
  Sex: Female

DRUGS (1)
  1. ENBREL [Suspect]
     Indication: RHEUMATOID ARTHRITIS
     Dosage: 50 mg, qwk
     Dates: start: 19980101, end: 20121005

REACTIONS (4)
  - Arthralgia [Recovered/Resolved]
  - Arthritis [Recovered/Resolved]
  - Device related infection [Recovered/Resolved]
  - Staphylococcal infection [Not Recovered/Not Resolved]
